FAERS Safety Report 8052063-2 (Version None)
Quarter: 2012Q1

REPORT INFORMATION
  Report Type: 
  Country: None (occurrence: None)
  Receive Date: 20120112
  Receipt Date: 20120105
  Transmission Date: 20120608
  Serious: Yes (Other)
  Sender: FDA-Public Use
  Company Number: SPI201100346

PATIENT
  Age: 43 Year
  Sex: Female
  Weight: 60.8 kg

DRUGS (11)
  1. AMITIZA [Suspect]
     Indication: IRRITABLE BOWEL SYNDROME
     Dosage: 8;24 MCG, QD, ORAL
     Route: 048
     Dates: start: 20111214, end: 20111221
  2. AMITIZA [Suspect]
     Indication: CONSTIPATION
     Dosage: 8;24 MCG, QD, ORAL
     Route: 048
     Dates: start: 20111214, end: 20111221
  3. AMITIZA [Suspect]
     Indication: IRRITABLE BOWEL SYNDROME
     Dosage: 8;24 MCG, QD, ORAL
     Route: 048
     Dates: start: 20110621, end: 20110704
  4. AMITIZA [Suspect]
     Indication: CONSTIPATION
     Dosage: 8;24 MCG, QD, ORAL
     Route: 048
     Dates: start: 20110621, end: 20110704
  5. ESTRADIOL [Concomitant]
  6. TRAZODONE HCL [Concomitant]
  7. FLEXERIL [Concomitant]
  8. VITAMIN D [Concomitant]
  9. FISH OIL (FISH OIL) [Concomitant]
  10. TOPIRAMATE [Concomitant]
  11. METAMUCIN (PSYLLIUM HYDROPHILIC MUCILLOID) [Concomitant]

REACTIONS (7)
  - HOT FLUSH [None]
  - NAUSEA [None]
  - FALL [None]
  - LOSS OF CONSCIOUSNESS [None]
  - LIP INJURY [None]
  - NECK INJURY [None]
  - DRUG INEFFECTIVE [None]
